FAERS Safety Report 4579429-7 (Version None)
Quarter: 2005Q1

REPORT INFORMATION
  Report Type: 
  Country: None (occurrence: None)
  Receive Date: 20050209
  Receipt Date: 20050131
  Transmission Date: 20050727
  Serious: Yes (Death, Other)
  Sender: FDA-Public Use
  Company Number: 2005-01-1642

PATIENT
  Age: 70 Year
  Sex: Female

DRUGS (4)
  1. PROVENTIL [Suspect]
     Indication: ASTHMA
     Dosage: ORAL AER INH
     Route: 055
     Dates: start: 19930101, end: 20050124
  2. AZMACORT [Suspect]
     Indication: ASTHMA
     Dosage: ORAL AER INH
     Route: 055
  3. SEREVENT [Suspect]
     Indication: ASTHMA
     Dosage: INHALATION
     Route: 055
  4. SINGULAIR [Suspect]
     Indication: ASTHMA
     Dosage: DAILY

REACTIONS (8)
  - BACK PAIN [None]
  - COMA [None]
  - DEVICE MALFUNCTION [None]
  - DIZZINESS [None]
  - DYSPNOEA [None]
  - HEART RATE INCREASED [None]
  - LUNG NEOPLASM [None]
  - RECTAL HAEMORRHAGE [None]
